FAERS Safety Report 9275859 (Version 2)
Quarter: 2013Q3

REPORT INFORMATION
  Report Type: Spontaneous
  Country: BR (occurrence: BR)
  Receive Date: 20130507
  Receipt Date: 20130912
  Transmission Date: 20140515
  Serious: Yes (Other)
  Sender: FDA-Public Use
  Company Number: BR-JNJFOC-20130417574

PATIENT
  Sex: Male

DRUGS (2)
  1. NICORETTE ICE MINT [Suspect]
     Indication: SMOKING CESSATION THERAPY
     Dosage: TOTAL DAILY DOSE OF 10 GUMS
     Route: 048
     Dates: start: 2011
  2. NICORETTE ICE MINT [Suspect]
     Indication: SMOKING CESSATION THERAPY
     Dosage: REDUCED TO TOTAL DAILY DOSE OF 5 GUMS
     Route: 048

REACTIONS (3)
  - Intentional drug misuse [Unknown]
  - Nicotine dependence [Not Recovered/Not Resolved]
  - Nervousness [Unknown]
